FAERS Safety Report 8382269-4 (Version None)
Quarter: 2012Q2

REPORT INFORMATION
  Report Type: 
  Country: None (occurrence: None)
  Receive Date: 20120524
  Receipt Date: 20120521
  Transmission Date: 20120825
  Serious: Yes (Other)
  Sender: FDA-Public Use
  Company Number: US-PFIZER INC-2012036540

PATIENT
  Sex: Male
  Weight: 77.098 kg

DRUGS (6)
  1. PRILOSEC [Concomitant]
     Indication: GASTROOESOPHAGEAL REFLUX DISEASE
     Dosage: UNK, DAILY
  2. MIRTAZAPINE [Suspect]
     Indication: DEPRESSION
     Dosage: 15 MG, DAILY
     Dates: start: 20110101
  3. CHANTIX [Suspect]
     Dosage: 1 MG, 2X/DAY
     Route: 048
     Dates: start: 20110101, end: 20110628
  4. PERCODAN [Suspect]
     Indication: PAIN IN EXTREMITY
  5. CHANTIX [Suspect]
     Indication: SMOKING CESSATION THERAPY
     Dosage: 0.5 MG, DAILY
     Route: 048
     Dates: start: 20110511, end: 20110101
  6. PERCODAN [Suspect]
     Indication: BACK PAIN
     Dosage: UNK, 3X/DAY
     Route: 048
     Dates: start: 20110101

REACTIONS (8)
  - MEMORY IMPAIRMENT [None]
  - ABDOMINAL PAIN UPPER [None]
  - BACK PAIN [None]
  - PAIN IN EXTREMITY [None]
  - DRUG INEFFECTIVE [None]
  - VERBAL ABUSE [None]
  - ABNORMAL BEHAVIOUR [None]
  - DEPRESSION [None]
